FAERS Safety Report 11040704 (Version 2)
Quarter: 2015Q2

REPORT INFORMATION
  Report Type: Spontaneous
  Country: US (occurrence: US)
  Receive Date: 20150416
  Receipt Date: 20150525
  Transmission Date: 20150821
  Serious: No
  Sender: FDA-Public Use
  Company Number: US-JNJFOC-20130318857

PATIENT
  Age: 88 Year
  Sex: Female
  Weight: 76.2 kg

DRUGS (7)
  1. LEVOTHYROXINE [Concomitant]
     Active Substance: LEVOTHYROXINE
     Indication: THYROID DISORDER
     Route: 048
  2. XARELTO [Suspect]
     Active Substance: RIVAROXABAN
     Indication: ATRIAL FIBRILLATION
     Route: 048
     Dates: start: 20130328
  3. LOSARTAN [Concomitant]
     Active Substance: LOSARTAN
     Indication: HYPERTENSION
     Route: 048
     Dates: start: 2011
  4. PANTOPRAZOLE [Concomitant]
     Active Substance: PANTOPRAZOLE SODIUM
     Indication: GASTRIC DISORDER
     Route: 048
     Dates: start: 2011
  5. FUROSEMIDE. [Concomitant]
     Active Substance: FUROSEMIDE
     Route: 048
  6. POTASSIUM [Concomitant]
     Active Substance: POTASSIUM
     Route: 048
  7. SIMVASTATIN. [Concomitant]
     Active Substance: SIMVASTATIN
     Indication: BLOOD CHOLESTEROL INCREASED
     Route: 048

REACTIONS (1)
  - Inappropriate schedule of drug administration [Not Recovered/Not Resolved]

NARRATIVE: CASE EVENT DATE: 20130328
